FAERS Safety Report 5525393-3 (Version None)
Quarter: 2007Q4

REPORT INFORMATION
  Report Type: 
  Country: None (occurrence: None)
  Receive Date: 20071120
  Receipt Date: 20071120
  Transmission Date: 20080405
  Serious: No
  Sender: FDA-Public Use
  Company Number: None

PATIENT
  Age: 45 Year
  Sex: Female
  Weight: 68.0396 kg

DRUGS (2)
  1. LEVAQUIN [Suspect]
     Indication: URINARY TRACT INFECTION
     Dosage: 500 MG ONCE DAILY PO
     Route: 048
     Dates: start: 20070307, end: 20070317
  2. LEVAQUIN [Suspect]
     Indication: URINARY TRACT INFECTION
     Dosage: 500 MG ONCE DAILY PO
     Route: 048
     Dates: start: 20070328, end: 20070401

REACTIONS (9)
  - ACTIVITIES OF DAILY LIVING IMPAIRED [None]
  - ARTHRALGIA [None]
  - DRUG TOXICITY [None]
  - JOINT SWELLING [None]
  - LIGAMENT INJURY [None]
  - LIGAMENT RUPTURE [None]
  - MUSCLE SWELLING [None]
  - MYALGIA [None]
  - TENDON INJURY [None]
